APPROVED DRUG PRODUCT: VENOFER
Active Ingredient: IRON SUCROSE
Strength: EQ 100MG IRON/5ML (EQ 20MG IRON/ML)
Dosage Form/Route: INJECTABLE;INTRAVENOUS
Application: N021135 | Product #001 | TE Code: AB
Applicant: AMERICAN REGENT INC
Approved: Nov 6, 2000 | RLD: Yes | RS: Yes | Type: RX